FAERS Safety Report 25056083 (Version 1)
Quarter: 2025Q1

REPORT INFORMATION
  Report Type: Report from Study
  Country: BR (occurrence: BR)
  Receive Date: 20250309
  Receipt Date: 20250309
  Transmission Date: 20250408
  Serious: Yes (Other)
  Sender: JOHNSON AND JOHNSON
  Company Number: BR-JNJFOC-20250303526

PATIENT
  Age: 25 Year
  Sex: Male

DRUGS (4)
  1. SPRAVATO [Suspect]
     Active Substance: ESKETAMINE
     Indication: Major depression
     Route: 045
  2. SPRAVATO [Suspect]
     Active Substance: ESKETAMINE
     Indication: Suicidal ideation
     Route: 045
  3. SPRAVATO [Suspect]
     Active Substance: ESKETAMINE
     Indication: Depression
     Route: 045
  4. SPRAVATO [Suspect]
     Active Substance: ESKETAMINE
     Route: 045

REACTIONS (3)
  - Major depression [Unknown]
  - Suicidal ideation [Unknown]
  - Off label use [Unknown]
